FAERS Safety Report 16107394 (Version 5)
Quarter: 2019Q3

REPORT INFORMATION
  Report Type: Spontaneous
  Country: JP (occurrence: JP)
  Receive Date: 20190322
  Receipt Date: 20190725
  Transmission Date: 20191004
  Serious: Yes (Death)
  Sender: FDA-Public Use
  Company Number: JP-JNJFOC-20190331431

PATIENT
  Age: 71 Year
  Sex: Female
  Weight: 52 kg

DRUGS (10)
  1. MESALAZINE [Concomitant]
     Active Substance: MESALAMINE
     Indication: CROHN^S DISEASE
     Dosage: 2 TABLETS IN 3 DIVIDED DOSES PER DAY
     Route: 048
     Dates: start: 20090812, end: 20101019
  2. PENTASA [Suspect]
     Active Substance: MESALAMINE
     Indication: CROHN^S DISEASE
     Dosage: ONCE A DAY
     Route: 048
     Dates: start: 20110223, end: 20181024
  3. REMICADE [Suspect]
     Active Substance: INFLIXIMAB
     Indication: CROHN^S DISEASE
     Route: 042
     Dates: start: 20090422, end: 20181023
  4. REMICADE [Suspect]
     Active Substance: INFLIXIMAB
     Route: 042
     Dates: start: 20090422
  5. REMICADE [Suspect]
     Active Substance: INFLIXIMAB
     Route: 042
     Dates: start: 20181024
  6. PREDNISOLONE. [Concomitant]
     Active Substance: PREDNISOLONE
     Indication: CROHN^S DISEASE
     Route: 042
  7. REMICADE [Suspect]
     Active Substance: INFLIXIMAB
     Route: 042
     Dates: start: 20110223
  8. PREDONINE [Concomitant]
     Active Substance: PREDNISOLONE
     Indication: CROHN^S DISEASE
     Route: 048
     Dates: start: 20050128, end: 20110809
  9. IMURAN [Concomitant]
     Active Substance: AZATHIOPRINE
     Indication: CROHN^S DISEASE
     Route: 048
     Dates: start: 20071110, end: 20111004
  10. SALAZOPYRIN [Concomitant]
     Active Substance: SULFASALAZINE
     Dosage: 2 TABLETS IN 3 DIVIDED DOSES PER DAY
     Dates: start: 20051010, end: 20090730

REACTIONS (3)
  - Drug level below therapeutic [Unknown]
  - Acute hepatic failure [Fatal]
  - Lupus-like syndrome [Fatal]

NARRATIVE: CASE EVENT DATE: 20181116
